FAERS Safety Report 14986496 (Version 1)
Quarter: 2018Q2

REPORT INFORMATION
  Report Type: Spontaneous
  Country: US (occurrence: US)
  Receive Date: 20180608
  Receipt Date: 20180608
  Transmission Date: 20180711
  Serious: No
  Sender: FDA-Public Use
  Company Number: US-BIOGEN-2018BI00592195

PATIENT
  Age: 57 Year
  Sex: Female

DRUGS (1)
  1. TECFIDERA [Suspect]
     Active Substance: DIMETHYL FUMARATE
     Indication: MULTIPLE SCLEROSIS
     Dosage: MAINTENANCE DOSE
     Route: 048
     Dates: start: 20170206, end: 20180605

REACTIONS (3)
  - Sensory disturbance [Unknown]
  - Fatigue [Unknown]
  - Balance disorder [Unknown]

NARRATIVE: CASE EVENT DATE: 20180521
